FAERS Safety Report 18678291 (Version 1)
Quarter: 2020Q4

REPORT INFORMATION
  Report Type: Spontaneous
  Country: US (occurrence: US)
  Receive Date: 20201230
  Receipt Date: 20201230
  Transmission Date: 20210114
  Serious: Yes (Life-Threatening)
  Sender: FDA-Public Use
  Company Number: US-STRIDES ARCOLAB LIMITED-2020SP012267

PATIENT
  Age: 22 Year
  Sex: Male

DRUGS (24)
  1. DEXAMETHASONE. [Concomitant]
     Active Substance: DEXAMETHASONE
     Indication: PRODUCT USED FOR UNKNOWN INDICATION
     Dosage: 4 MILLIGRAM
     Route: 065
  2. LACTATED RINGERS SOLUTION [Concomitant]
     Active Substance: CALCIUM CHLORIDE\POTASSIUM CHLORIDE\SODIUM CHLORIDE\SODIUM LACTATE
     Indication: PRODUCT USED FOR UNKNOWN INDICATION
     Dosage: 800 MILLILITER
     Route: 065
  3. LACTATED RINGERS SOLUTION [Concomitant]
     Active Substance: CALCIUM CHLORIDE\POTASSIUM CHLORIDE\SODIUM CHLORIDE\SODIUM LACTATE
     Dosage: 800 MILLILITER
     Route: 065
  4. LIDOCAINE. [Suspect]
     Active Substance: LIDOCAINE
     Dosage: 100 MILLIGRAM BOLUS
     Route: 065
  5. FENTANYL. [Suspect]
     Active Substance: FENTANYL
     Dosage: 100 MICROGRAM
     Route: 065
  6. MIDAZOLAM. [Concomitant]
     Active Substance: MIDAZOLAM
     Dosage: 2 MILLIGRAM
     Route: 065
  7. LIDOCAINE. [Suspect]
     Active Substance: LIDOCAINE
     Dosage: 100 MILLIGRAM
     Route: 065
  8. ONDANSETRON [Concomitant]
     Active Substance: ONDANSETRON
     Dosage: UNK
  9. LIDOCAINE. [Suspect]
     Active Substance: LIDOCAINE
     Indication: GENERAL ANAESTHESIA
     Dosage: 50 MILLIGRAM
     Route: 065
  10. DEXAMETHASONE. [Concomitant]
     Active Substance: DEXAMETHASONE
     Dosage: 4 MILLIGRAM
     Route: 065
  11. ONDANSETRON [Concomitant]
     Active Substance: ONDANSETRON
     Dosage: 4 MILLIGRAM
     Route: 065
  12. PHENYLEPHRINE [Concomitant]
     Active Substance: PHENYLEPHRINE HYDROCHLORIDE
     Indication: PRODUCT USED FOR UNKNOWN INDICATION
     Dosage: 300 MILLIGRAM
     Route: 065
  13. FENTANYL. [Suspect]
     Active Substance: FENTANYL
     Indication: GENERAL ANAESTHESIA
     Dosage: 25 MICROGRAM
     Route: 065
  14. ONDANSETRON [Concomitant]
     Active Substance: ONDANSETRON
     Indication: PRODUCT USED FOR UNKNOWN INDICATION
     Dosage: 4 MILLIGRAM
     Route: 065
  15. LIDOCAINE. [Suspect]
     Active Substance: LIDOCAINE
     Indication: TACHYCARDIA
     Dosage: 100 MILLIGRAM
     Route: 065
  16. MIDAZOLAM. [Concomitant]
     Active Substance: MIDAZOLAM
     Indication: PRODUCT USED FOR UNKNOWN INDICATION
     Dosage: 2 MILLIGRAM
     Route: 065
  17. MIDAZOLAM. [Concomitant]
     Active Substance: MIDAZOLAM
     Dosage: 2 MILLIGRAM
     Route: 065
  18. LACTATED RINGERS SOLUTION [Concomitant]
     Active Substance: CALCIUM CHLORIDE\POTASSIUM CHLORIDE\SODIUM CHLORIDE\SODIUM LACTATE
     Dosage: 800 MILLILITER
     Route: 065
  19. PROPOFOL. [Suspect]
     Active Substance: PROPOFOL
     Dosage: 150 MILLIGRAM
     Route: 065
  20. PROPOFOL. [Suspect]
     Active Substance: PROPOFOL
     Indication: GENERAL ANAESTHESIA
     Dosage: 200 MILLIGRAM
     Route: 065
  21. PROPOFOL. [Suspect]
     Active Substance: PROPOFOL
     Dosage: 200 MILLIGRAM
     Route: 065
  22. FENTANYL. [Suspect]
     Active Substance: FENTANYL
     Dosage: 25 MICROGRAM
     Route: 065
  23. ONDANSETRON [Concomitant]
     Active Substance: ONDANSETRON
     Dosage: 4 MILLIGRAM
     Route: 065
  24. CALCIUM CHLORIDE. [Concomitant]
     Active Substance: CALCIUM CHLORIDE
     Indication: PRODUCT USED FOR UNKNOWN INDICATION
     Dosage: 1000 MILLIGRAM
     Route: 065

REACTIONS (3)
  - Cardiac arrest [Recovered/Resolved]
  - Bradycardia [Recovered/Resolved]
  - Drug ineffective for unapproved indication [Unknown]
